FAERS Safety Report 11321352 (Version 2)
Quarter: 2015Q3

REPORT INFORMATION
  Report Type: Spontaneous
  Country: US (occurrence: US)
  Receive Date: 20150729
  Receipt Date: 20150820
  Transmission Date: 20151125
  Serious: No
  Sender: FDA-Public Use
  Company Number: US-BAYER-2015-386148

PATIENT
  Age: 59 Year
  Sex: Female
  Weight: 138.32 kg

DRUGS (1)
  1. BETASERON [Suspect]
     Active Substance: INTERFERON BETA-1B
     Indication: MULTIPLE SCLEROSIS
     Dosage: 0.3 MG, QOD
     Route: 058
     Dates: start: 20081231

REACTIONS (5)
  - Injection site induration [None]
  - Rash [None]
  - Skin swelling [None]
  - Skin haemorrhage [None]
  - Injection site erythema [None]

NARRATIVE: CASE EVENT DATE: 20150721
